FAERS Safety Report 4572137-8 (Version None)
Quarter: 2005Q1

REPORT INFORMATION
  Report Type: 
  Country: None (occurrence: None)
  Receive Date: 20050202
  Receipt Date: 20050117
  Transmission Date: 20050727
  Serious: Yes (Hospitalization, Other)
  Sender: FDA-Public Use
  Company Number: USA050188580

PATIENT
  Age: 64 Year
  Sex: Female

DRUGS (3)
  1. CYMBALTA [Suspect]
     Dosage: 60 MG DAY
  2. NORETHINDRONE ACETATE [Concomitant]
  3. LISINOPRIL [Concomitant]

REACTIONS (2)
  - HEPATIC ENZYME INCREASED [None]
  - INFECTED SKIN ULCER [None]
